FAERS Safety Report 6316501-5 (Version None)
Quarter: 2009Q3

REPORT INFORMATION
  Report Type: 
  Country: None (occurrence: None)
  Receive Date: 20090820
  Receipt Date: 20090814
  Transmission Date: 20100115
  Serious: Yes (Hospitalization)
  Sender: FDA-Public Use
  Company Number: US-ASTRAZENECA-2009SE08155

PATIENT
  Age: 958 Month
  Sex: Female
  Weight: 47.6 kg

DRUGS (7)
  1. CRESTOR [Suspect]
     Indication: BLOOD CHOLESTEROL INCREASED
     Route: 048
     Dates: start: 20080101
  2. ASPIRIN [Concomitant]
     Dosage: DAILY DOSAGE 81 DOSE WAS NOT REPORTED
  3. OMEPRAZOLE [Concomitant]
  4. LEVOTHYROXINE [Concomitant]
  5. WARFARIN [Concomitant]
  6. PAROXETINE HCL [Concomitant]
  7. GABAPENTIN [Concomitant]

REACTIONS (4)
  - ASPIRATION [None]
  - NAUSEA [None]
  - PNEUMONIA [None]
  - VOMITING [None]
